FAERS Safety Report 20189469 (Version 2)
Quarter: 2022Q1

REPORT INFORMATION
  Report Type: Report from Study
  Country: GB (occurrence: GB)
  Receive Date: 20211215
  Receipt Date: 20220120
  Transmission Date: 20220423
  Serious: Yes (Hospitalization, Other)
  Sender: FDA-Public Use
  Company Number: GB-BRISTOL-MYERS SQUIBB COMPANY-BMS-2021-133370

PATIENT
  Age: 79 Year
  Sex: Male

DRUGS (1)
  1. ABATACEPT [Suspect]
     Active Substance: ABATACEPT
     Indication: Rheumatoid arthritis
     Dosage: 125 MILLIGRAM, QWK
     Route: 058
     Dates: start: 20210915

REACTIONS (8)
  - Hypertension [Unknown]
  - Hypotension [Unknown]
  - Dyspnoea [Unknown]
  - Heart rate irregular [Unknown]
  - Syncope [Unknown]
  - Drug ineffective [Unknown]
  - Bundle branch block right [Unknown]
  - Orthostatic hypotension [Unknown]
